FAERS Safety Report 20754836 (Version 6)
Quarter: 2022Q4

REPORT INFORMATION
  Report Type: Report from Study
  Country: CA (occurrence: CA)
  Receive Date: 20220427
  Receipt Date: 20221102
  Transmission Date: 20230112
  Serious: Yes (Other)
  Sender: FDA-Public Use
  Company Number: CA-BRISTOL-MYERS SQUIBB COMPANY-2022-022989

PATIENT
  Age: 77 Year
  Sex: Male
  Weight: 82.7 kg

DRUGS (7)
  1. REBLOZYL [Suspect]
     Active Substance: LUSPATERCEPT-AAMT
     Indication: Myelodysplastic syndrome
     Route: 042
     Dates: start: 20210623
  2. REBLOZYL [Suspect]
     Active Substance: LUSPATERCEPT-AAMT
     Indication: Thalassaemia beta
     Route: 065
     Dates: start: 20210821
  3. REBLOZYL [Suspect]
     Active Substance: LUSPATERCEPT-AAMT
     Route: 058
     Dates: start: 20210823
  4. REBLOZYL [Suspect]
     Active Substance: LUSPATERCEPT-AAMT
     Route: 058
  5. REBLOZYL [Suspect]
     Active Substance: LUSPATERCEPT-AAMT
     Route: 065
     Dates: start: 20210823
  6. REBLOZYL [Suspect]
     Active Substance: LUSPATERCEPT-AAMT
     Route: 058
     Dates: start: 20210823
  7. REBLOZYL [Suspect]
     Active Substance: LUSPATERCEPT-AAMT
     Dosage: 21 DAYS
     Route: 058
     Dates: start: 20210823

REACTIONS (13)
  - Fall [Recovering/Resolving]
  - Head injury [Recovering/Resolving]
  - Haemorrhage [Unknown]
  - Epistaxis [Unknown]
  - Contusion [Unknown]
  - Spinal column injury [Unknown]
  - Buttock injury [Unknown]
  - Dizziness [Unknown]
  - Prescribed overdose [Unknown]
  - Injection site pain [Unknown]
  - Pain in extremity [Recovering/Resolving]
  - Generalised oedema [Recovering/Resolving]
  - Erythema [Recovering/Resolving]

NARRATIVE: CASE EVENT DATE: 20220816
